FAERS Safety Report 20053157 (Version 1)
Quarter: 2021Q4

REPORT INFORMATION
  Report Type: Spontaneous
  Country: US (occurrence: None)
  Receive Date: 20211109
  Receipt Date: 20211109
  Transmission Date: 20220303
  Serious: No
  Sender: FDA-Public Use
  Company Number: None

PATIENT

DRUGS (1)
  1. PHENYLEPHRINE [Suspect]
     Active Substance: PHENYLEPHRINE HYDROCHLORIDE

REACTIONS (6)
  - Septic shock [None]
  - Gastrointestinal necrosis [None]
  - Product communication issue [None]
  - Transcription medication error [None]
  - Incorrect dose administered [None]
  - Accidental overdose [None]
